FAERS Safety Report 8027245-6 (Version None)
Quarter: 2012Q1

REPORT INFORMATION
  Report Type: 
  Country: None (occurrence: None)
  Receive Date: 20120105
  Receipt Date: 20120105
  Transmission Date: 20120608
  Serious: Yes (Other)
  Sender: FDA-Public Use
  Company Number: None

PATIENT
  Age: 53 Year
  Sex: Male

DRUGS (1)
  1. PALIPERIDONE [Suspect]
     Dosage: MG SQ
     Route: 058
     Dates: start: 20111024

REACTIONS (2)
  - AKATHISIA [None]
  - DYSTONIA [None]
